FAERS Safety Report 14453148 (Version 2)
Quarter: 2018Q1

REPORT INFORMATION
  Report Type: Report from Study
  Country: DE (occurrence: DE)
  Receive Date: 20180129
  Receipt Date: 20180209
  Transmission Date: 20180509
  Serious: Yes (Hospitalization)
  Sender: FDA-Public Use
  Company Number: DE-CELGENEUS-DEU-2016124813

PATIENT
  Age: 66 Year
  Sex: Female

DRUGS (21)
  1. JODETTEN [Concomitant]
     Indication: HYPOTHYROIDISM
     Route: 065
  2. PANTOPRAZOL [Concomitant]
     Active Substance: PANTOPRAZOLE SODIUM
     Indication: PRODUCT USED FOR UNKNOWN INDICATION
     Route: 065
     Dates: start: 20161125
  3. GRANISETRON [Concomitant]
     Active Substance: GRANISETRON
     Indication: NAUSEA
     Route: 065
     Dates: start: 20161125
  4. ALOXI [Concomitant]
     Active Substance: PALONOSETRON HYDROCHLORIDE
     Indication: VOMITING
  5. DEXAMETHASONE. [Concomitant]
     Active Substance: DEXAMETHASONE
     Indication: NAUSEA
     Route: 065
     Dates: start: 20161125, end: 20170428
  6. TAVOR (LORAZEPAM) [Concomitant]
     Active Substance: LORAZEPAM
     Indication: NAUSEA
     Route: 065
     Dates: start: 20161201, end: 20161201
  7. CARBOPLATIN. [Suspect]
     Active Substance: CARBOPLATIN
     Indication: NON-SMALL CELL LUNG CANCER
     Dosage: 40 MILLIGRAM
     Route: 065
     Dates: start: 20161125, end: 20161125
  8. FILGRASTIM [Concomitant]
     Active Substance: FILGRASTIM
     Indication: NEUTROPENIA
     Route: 065
     Dates: start: 20161212, end: 20161212
  9. ZYPREXA [Concomitant]
     Active Substance: OLANZAPINE
     Indication: DEPRESSION
     Route: 065
  10. TAVOR (LORAZEPAM) [Concomitant]
     Active Substance: LORAZEPAM
     Route: 065
     Dates: start: 20161201, end: 20170505
  11. ATEZOLIZUMAB. [Suspect]
     Active Substance: ATEZOLIZUMAB
     Indication: NON-SMALL CELL LUNG CANCER
     Dosage: 1200 MILLIGRAM
     Route: 041
     Dates: start: 20161125, end: 20161125
  12. KALINOR BRAUSE [Concomitant]
     Indication: HYPOKALAEMIA
     Route: 065
     Dates: start: 20161208
  13. ALOXI [Concomitant]
     Active Substance: PALONOSETRON HYDROCHLORIDE
     Indication: NAUSEA
     Route: 065
     Dates: start: 20161125, end: 20170428
  14. DEXAMETHASONE. [Concomitant]
     Active Substance: DEXAMETHASONE
     Route: 065
     Dates: start: 20161201, end: 20170505
  15. ABRAXANE [Suspect]
     Active Substance: PACLITAXEL
     Indication: NON-SMALL CELL LUNG CANCER
     Dosage: 100MG/M2, 172MG
     Route: 041
     Dates: start: 20161125, end: 20161125
  16. OLANZAPIN [Concomitant]
     Active Substance: OLANZAPINE
     Indication: DEPRESSION
     Route: 065
     Dates: start: 20161201
  17. L-THYROXIN [Concomitant]
     Active Substance: LEVOTHYROXINE SODIUM
     Indication: HYPOTHYROIDISM
     Route: 065
  18. METFORMIN [Concomitant]
     Active Substance: METFORMIN HYDROCHLORIDE
     Indication: TYPE 2 DIABETES MELLITUS
     Route: 065
  19. METOCLOPRAMIDE. [Concomitant]
     Active Substance: METOCLOPRAMIDE
     Indication: NAUSEA
     Dosage: 10 MCP
     Route: 065
     Dates: start: 20161125
  20. NOVAMINSULFON [Concomitant]
     Active Substance: METAMIZOLE
     Indication: ARTHRALGIA
     Route: 065
     Dates: start: 20161201
  21. OLANZAPIN [Concomitant]
     Active Substance: OLANZAPINE
     Route: 065
     Dates: start: 20161201, end: 20170505

REACTIONS (1)
  - Bronchitis [Recovered/Resolved]

NARRATIVE: CASE EVENT DATE: 20161208
